FAERS Safety Report 13503051 (Version 1)
Quarter: 2017Q2

REPORT INFORMATION
  Report Type: Other
  Country: US (occurrence: US)
  Receive Date: 20170502
  Receipt Date: 20170502
  Transmission Date: 20170830
  Serious: Yes (Other)
  Sender: FDA-Public Use
  Company Number: US-COL_26498_2017

PATIENT
  Age: 61 Year
  Sex: Male

DRUGS (1)
  1. COLGATE TOTAL ADVANCED CLEAN [Suspect]
     Active Substance: SODIUM FLUORIDE\TRICLOSAN
     Indication: PRODUCT USED FOR UNKNOWN INDICATION
     Dosage: HALF THE LENGTH OF TOOTHRUSH/ONCE A DAY/
     Route: 048
     Dates: end: 2010

REACTIONS (3)
  - Dry mouth [Unknown]
  - Thyroid cancer [Unknown]
  - Salivary gland cancer [Unknown]

NARRATIVE: CASE EVENT DATE: 2001
